FAERS Safety Report 8677356 (Version 4)
Quarter: 2012Q4

REPORT INFORMATION
  Report Type: 
  Country: FR (occurrence: FR)
  Receive Date: 20120723
  Receipt Date: 20120920
  Transmission Date: 20130627
  Serious: Yes (Other)
  Sender: FDA-Public Use
  Company Number: PHHY2012FR058553

PATIENT
  Age: 21 None
  Sex: Male

DRUGS (1)
  1. LEPONEX [Suspect]
     Dosage: 25 mg, QD
     Dates: start: 20050512, end: 20050714

REACTIONS (22)
  - Head injury [Unknown]
  - Feeling abnormal [Unknown]
  - Blood pressure systolic decreased [Unknown]
  - Cardiomyopathy [Unknown]
  - Congestive cardiomyopathy [Unknown]
  - Cardiomegaly [Unknown]
  - Dyspnoea [Unknown]
  - Dyspnoea exertional [Unknown]
  - Chest pain [Unknown]
  - Left ventricular dysfunction [Recovering/Resolving]
  - Ejection fraction decreased [Unknown]
  - Palpitations [Unknown]
  - Tachyarrhythmia [Unknown]
  - Fatigue [Unknown]
  - Stress [Unknown]
  - Hyperhidrosis [Unknown]
  - Nausea [Unknown]
  - Vomiting [Unknown]
  - Weight increased [Unknown]
  - Skin reaction [Unknown]
  - Confusional state [Unknown]
  - Blood pressure increased [Unknown]
